FAERS Safety Report 6189007-4 (Version None)
Quarter: 2009Q2

REPORT INFORMATION
  Report Type: 
  Country: None (occurrence: None)
  Receive Date: 20090513
  Receipt Date: 20090504
  Transmission Date: 20091009
  Serious: Yes (Disabling, Other)
  Sender: FDA-Public Use
  Company Number: GB-PFIZER INC-2009207625

PATIENT
  Age: 33 Year

DRUGS (2)
  1. CHAMPIX [Suspect]
     Indication: EX-TOBACCO USER
     Dosage: 1 MG, 2X/DAY
     Route: 048
     Dates: start: 20090311, end: 20090416
  2. DOVOBET [Concomitant]
     Indication: PSORIASIS
     Dosage: UNK MG, 2X/DAY
     Dates: start: 20080725

REACTIONS (2)
  - DEPRESSION [None]
  - PARANOIA [None]
